FAERS Safety Report 8046203-9 (Version None)
Quarter: 2012Q1

REPORT INFORMATION
  Report Type: 
  Country: None (occurrence: None)
  Receive Date: 20120113
  Receipt Date: 20120111
  Transmission Date: 20120608
  Serious: Yes (Other)
  Sender: FDA-Public Use
  Company Number: US-PFIZER INC-2012009161

PATIENT
  Sex: Female
  Weight: 74.83 kg

DRUGS (4)
  1. XANAX [Suspect]
     Indication: ANXIETY
     Dosage: 2 MG, FOUR TIMES IN A DAY AND ONE TIME IN THE NIGHT AS NEEDED
     Route: 048
  2. NAVANE [Concomitant]
     Indication: MYALGIA
  3. NAVANE [Concomitant]
     Indication: SCHIZOPHRENIA
     Dosage: 10 MG, DAILY
  4. ALPRAZOLAM [Suspect]
     Indication: ANXIETY
     Dosage: UNK

REACTIONS (6)
  - DRUG INEFFECTIVE [None]
  - CONVULSION [None]
  - WITHDRAWAL SYNDROME [None]
  - DYSKINESIA [None]
  - PANIC ATTACK [None]
  - MUSCLE CONTRACTURE [None]
